FAERS Safety Report 6937551-1 (Version None)
Quarter: 2010Q3

REPORT INFORMATION
  Report Type: 
  Country: None (occurrence: None)
  Receive Date: 20100823
  Receipt Date: 20100823
  Transmission Date: 20110219
  Serious: Yes (Hospitalization)
  Sender: FDA-Public Use
  Company Number: None

PATIENT
  Age: 64 Year
  Sex: Male
  Weight: 83.9154 kg

DRUGS (1)
  1. ZESTRIL [Suspect]
     Indication: BLOOD PRESSURE
     Dosage: ONE TABLET ORALLY DAILY DAILY
     Route: 048
     Dates: start: 20100607, end: 20100716

REACTIONS (6)
  - COUGH [None]
  - DECREASED APPETITE [None]
  - DEEP VEIN THROMBOSIS [None]
  - DIZZINESS [None]
  - HYPERHIDROSIS [None]
  - URINARY RETENTION [None]
